FAERS Safety Report 20613903 (Version 1)
Quarter: 2022Q1

REPORT INFORMATION
  Report Type: Other
  Country: GB (occurrence: GB)
  Receive Date: 20220319
  Receipt Date: 20220319
  Transmission Date: 20220424
  Serious: No
  Sender: FDA-Public Use
  Company Number: GB-MHRA-MED-202203081844555680-8LPJO

PATIENT
  Sex: Female

DRUGS (1)
  1. SERTRALINE [Suspect]
     Active Substance: SERTRALINE HYDROCHLORIDE
     Indication: Product used for unknown indication
     Dosage: UNK
     Route: 065

REACTIONS (1)
  - Breast pain [Not Recovered/Not Resolved]
